FAERS Safety Report 7108977-0 (Version None)
Quarter: 2010Q4

REPORT INFORMATION
  Report Type: 
  Country: None (occurrence: None)
  Receive Date: 20101117
  Receipt Date: 20101104
  Transmission Date: 20110411
  Serious: Yes (Other)
  Sender: FDA-Public Use
  Company Number: PHEH2009US11400

PATIENT
  Sex: Female
  Weight: 73.197 kg

DRUGS (25)
  1. EXJADE [Suspect]
     Indication: SICKLE CELL ANAEMIA
     Dosage: 1000 MG/DAILY
     Route: 048
     Dates: start: 20090819, end: 20090922
  2. EXJADE [Suspect]
     Indication: IRON OVERLOAD
     Dosage: 125 MG DAILY
     Route: 048
     Dates: start: 20100310, end: 20100805
  3. EXJADE [Suspect]
     Indication: SERUM FERRITIN INCREASED
  4. COUMADIN [Suspect]
     Dosage: 3MG DAILY
     Route: 048
  5. HYDROXYUREA [Concomitant]
     Dosage: 1000 MG DAILYO
     Route: 048
  6. DESYREL [Concomitant]
     Dosage: 100 MG EVERY DAY BEFORE SLEEP
     Route: 048
  7. NICOTINE [Concomitant]
     Dosage: 14 MG, UNK
     Route: 062
  8. NEURONTIN [Concomitant]
     Dosage: 300 THREE TIMES A DAY
     Route: 048
  9. NEURONTIN [Concomitant]
     Dosage: 200 MG, TID
  10. LEXAPRO [Concomitant]
     Dosage: 20 MG DAILY
     Route: 048
  11. CYSTOSPAZ [Concomitant]
     Dosage: 0.125 MG, TID
     Route: 048
  12. BENTYL [Concomitant]
     Dosage: 20 MG, PRN
     Route: 048
  13. ZOFRAN [Concomitant]
     Dosage: 4 MG, QID
     Route: 048
  14. ULTRAM [Concomitant]
     Dosage: 50 MG, Q4H
  15. DILAUDID [Concomitant]
     Dosage: 2 MG, QID
  16. DILAUDID [Concomitant]
     Dosage: 3MG PRN
  17. COMPAZINE [Concomitant]
     Dosage: 10 MG, PRN
     Route: 048
  18. DULCOLAX [Concomitant]
     Dosage: UNK
  19. LACTULOSE [Concomitant]
     Dosage: 30 ML (2TSP) Q DAY
     Route: 048
  20. LASIX [Concomitant]
     Dosage: 40 MG, PRN
  21. BUTALBITAL ACETAMINOPHEN AND CAFFEINE [Concomitant]
     Dosage: UNK
     Route: 048
  22. METHADONE HCL [Concomitant]
     Indication: SICKLE CELL ANAEMIA
     Dosage: 2TABS Q AM, 3 TABLS AT NOON, 3 TABS HS
  23. FLEXERIL [Concomitant]
     Dosage: 10 MG, TID
     Route: 048
  24. ALBUTEROL SULFATE AND IPRATROPIUM BROMIDE [Concomitant]
     Dosage: UNK
  25. HYDROMORPHONE HCL [Concomitant]
     Indication: SICKLE CELL ANAEMIA
     Dosage: 1-2 TABLETS EVERY 6 HOURS PRN

REACTIONS (11)
  - ABDOMINAL DISTENSION [None]
  - CHEST PAIN [None]
  - COUGH [None]
  - DRUG INTOLERANCE [None]
  - DYSGEUSIA [None]
  - DYSPNOEA [None]
  - HAEMOPTYSIS [None]
  - HYPOKALAEMIA [None]
  - LIVER FUNCTION TEST ABNORMAL [None]
  - NAUSEA [None]
  - SALIVARY HYPERSECRETION [None]
